FAERS Safety Report 5318069-9 (Version None)
Quarter: 2007Q2

REPORT INFORMATION
  Report Type: 
  Country: None (occurrence: None)
  Receive Date: 20070504
  Receipt Date: 20070504
  Transmission Date: 20071010
  Serious: Yes (Other)
  Sender: FDA-Public Use
  Company Number: None

PATIENT
  Age: 50 Year
  Sex: Female
  Weight: 59.8748 kg

DRUGS (1)
  1. FEMTRACE .045 MG WARNER CHILCOTT [Suspect]
     Indication: MENOPAUSAL SYMPTOMS
     Dosage: .045 9 X WEEK PO
     Route: 048
     Dates: start: 20061206, end: 20070218

REACTIONS (3)
  - CONDITION AGGRAVATED [None]
  - DRUG EFFECT DECREASED [None]
  - PHARMACEUTICAL PRODUCT COMPLAINT [None]
